FAERS Safety Report 9153565 (Version 2)
Quarter: 2013Q1

REPORT INFORMATION
  Report Type: Spontaneous
  Country: JP (occurrence: JP)
  Receive Date: 20130311
  Receipt Date: 20130321
  Transmission Date: 20140127
  Serious: Yes (Other)
  Sender: FDA-Public Use
  Company Number: PHHY2013JP022460

PATIENT
  Sex: Female

DRUGS (2)
  1. ZOLEDRONIC ACID [Suspect]
     Indication: PLASMA CELL MYELOMA
     Route: 041
     Dates: end: 201203
  2. BORTEZOMIB [Suspect]
     Indication: PLASMA CELL MYELOMA
     Dates: end: 2011

REACTIONS (12)
  - Fanconi syndrome acquired [Unknown]
  - Hypocalcaemia [Unknown]
  - Metabolic acidosis [Unknown]
  - Blood parathyroid hormone increased [Unknown]
  - Vitamin D decreased [Unknown]
  - Aminoaciduria [Unknown]
  - Renal glycosuria [Unknown]
  - Electrolyte imbalance [Unknown]
  - Amino acid level decreased [Unknown]
  - Anaemia macrocytic [Unknown]
  - Renal tubular disorder [Unknown]
  - Malaise [Unknown]
